FAERS Safety Report 24022663 (Version 1)
Quarter: 2024Q2

REPORT INFORMATION
  Report Type: Spontaneous
  Country: US (occurrence: US)
  Receive Date: 20240627
  Receipt Date: 20240627
  Transmission Date: 20240715
  Serious: No
  Sender: FDA-Public Use
  Company Number: US-ROCHE-3532536

PATIENT

DRUGS (2)
  1. VABYSMO [Suspect]
     Active Substance: FARICIMAB\FARICIMAB-SVOA
     Indication: Retinal vein occlusion
     Route: 065
  2. COMBIGAN [Concomitant]
     Active Substance: BRIMONIDINE TARTRATE\TIMOLOL MALEATE

REACTIONS (1)
  - Intraocular pressure increased [Not Recovered/Not Resolved]
